FAERS Safety Report 9219351 (Version 1)
Quarter: 2013Q2

REPORT INFORMATION
  Report Type: Spontaneous
  Country: US (occurrence: US)
  Receive Date: 20130409
  Receipt Date: 20130409
  Transmission Date: 20140414
  Serious: No
  Sender: FDA-Public Use
  Company Number: US-TEVA-396971USA

PATIENT
  Sex: Female

DRUGS (1)
  1. AZILECT [Suspect]
     Indication: PARKINSON^S DISEASE
     Dates: start: 201303

REACTIONS (3)
  - Joint swelling [Not Recovered/Not Resolved]
  - Local swelling [Not Recovered/Not Resolved]
  - Pruritus [Not Recovered/Not Resolved]
